FAERS Safety Report 4815158-X (Version None)
Quarter: 2005Q4

REPORT INFORMATION
  Report Type: 
  Country: None (occurrence: None)
  Receive Date: 20051027
  Receipt Date: 20051015
  Transmission Date: 20060501
  Serious: Yes (Other)
  Sender: FDA-Public Use
  Company Number: 2005141585

PATIENT
  Age: 17 Year
  Sex: Female
  Weight: 52.1637 kg

DRUGS (1)
  1. DRAMAMINE [Suspect]
     Indication: INTENTIONAL OVERDOSE
     Dosage: 12 TABLETS ONCE, ORAL
     Route: 048
     Dates: start: 20051014, end: 20051014

REACTIONS (3)
  - HEART RATE INCREASED [None]
  - INTENTIONAL OVERDOSE [None]
  - PSYCHOMOTOR HYPERACTIVITY [None]
